FAERS Safety Report 9169419 (Version 3)
Quarter: 2013Q2

REPORT INFORMATION
  Report Type: Spontaneous
  Country: US (occurrence: US)
  Receive Date: 20130318
  Receipt Date: 20130516
  Transmission Date: 20140414
  Serious: Yes (Hospitalization, Other)
  Sender: FDA-Public Use
  Company Number: US-PFIZER INC-2013088998

PATIENT
  Age: 63 Year
  Sex: Male

DRUGS (7)
  1. ACCUPRIL [Suspect]
     Indication: MYOCARDIAL INFARCTION
     Dosage: 10 MG, 1X/DAY
     Route: 048
  2. ACCUPRIL [Suspect]
     Indication: HYPERTENSION
  3. GABAPENTIN [Suspect]
     Indication: PAIN
     Dosage: 300 MG, DAILY
  4. VICODIN [Suspect]
     Indication: PAIN
     Dosage: UNK, DAILY (6HR)
     Route: 048
  5. TOPROL XL [Concomitant]
     Indication: HYPERTENSION
     Dosage: 50 MG, 2X/DAY
  6. COUMADINE [Concomitant]
     Dosage: UNK
  7. LASIX [Concomitant]
     Dosage: UNK

REACTIONS (9)
  - Peripheral vascular disorder [Unknown]
  - Arterial insufficiency [Unknown]
  - Gangrene [Not Recovered/Not Resolved]
  - Vascular bypass dysfunction [Unknown]
  - Ischaemia [Unknown]
  - Arteriosclerosis [Unknown]
  - Skin ulcer [Not Recovered/Not Resolved]
  - Local swelling [Unknown]
  - Drug ineffective [Unknown]
